FAERS Safety Report 9225163 (Version 1)
Quarter: 2013Q2

REPORT INFORMATION
  Report Type: Spontaneous
  Country: BR (occurrence: BR)
  Receive Date: 20130411
  Receipt Date: 20130411
  Transmission Date: 20140414
  Serious: Yes (Other)
  Sender: FDA-Public Use
  Company Number: BR-ASTRAZENECA-2013SE22460

PATIENT
  Age: 919 Month
  Sex: Male
  Weight: 64 kg

DRUGS (8)
  1. ATENOLOL [Suspect]
     Indication: HYPERTENSION
     Route: 048
     Dates: start: 2003
  2. ATACAND [Suspect]
     Indication: HYPERTENSION
     Route: 048
     Dates: start: 2009
  3. GLUCOFORMIN [Concomitant]
     Indication: DIABETES MELLITUS
     Dosage: THREE TIMES A DAY
     Dates: start: 1993
  4. INSULIN [Concomitant]
     Indication: DIABETES MELLITUS
     Dosage: TWO TIMES A DAY
     Dates: start: 2003
  5. DIGOXIN [Concomitant]
     Indication: HYPERTENSION
     Dosage: DAILY
     Dates: start: 2012
  6. NATRILIX [Concomitant]
     Indication: HYPERTENSION
     Dates: start: 2003
  7. SPIRONOLACTONE [Concomitant]
     Indication: HYPERTENSION
     Dates: start: 2012
  8. LIPITOR [Concomitant]
     Indication: BLOOD CHOLESTEROL INCREASED
     Dosage: DAILY
     Dates: start: 1998

REACTIONS (3)
  - Blood pressure increased [Recovered/Resolved]
  - Arrhythmia [Unknown]
  - Drug ineffective [Unknown]
